FAERS Safety Report 13544651 (Version 1)
Quarter: 2017Q2

REPORT INFORMATION
  Report Type: Spontaneous
  Country: US (occurrence: US)
  Receive Date: 20170515
  Receipt Date: 20170515
  Transmission Date: 20170830
  Serious: No
  Sender: FDA-Public Use
  Company Number: US-VERTEX PHARMACEUTICALS-2017-002575

PATIENT
  Age: 32 Year
  Sex: Male

DRUGS (12)
  1. BUPROPION XL [Concomitant]
     Active Substance: BUPROPION
     Dosage: 300 MG, UNK
  2. BUSPIRONE [Concomitant]
     Active Substance: BUSPIRONE HYDROCHLORIDE
     Dosage: 15 MG, UNK
  3. HYDROCODONE BITARTRATE AND ACETAMINOPHEN [Concomitant]
     Active Substance: ACETAMINOPHEN\HYDROCODONE BITARTRATE
     Dosage: UNK
  4. ZOLPIDEM [Concomitant]
     Active Substance: ZOLPIDEM\ZOLPIDEM TARTRATE
     Dosage: 10 MG, UNK
  5. LEVALBUTEROL. [Concomitant]
     Active Substance: LEVALBUTEROL
     Dosage: 1.25 MG/ML, UNK
  6. TRAZODONE [Concomitant]
     Active Substance: TRAZODONE HYDROCHLORIDE
     Dosage: 50 MG, UNK
  7. ALPRAZOLAM. [Concomitant]
     Active Substance: ALPRAZOLAM
     Dosage: 1 MG, UNK
  8. ORKAMBI [Suspect]
     Active Substance: IVACAFTOR\LUMACAFTOR
     Indication: CYSTIC FIBROSIS
     Dosage: 2 DF (200-125 MG EACH), BID
     Route: 048
  9. SYMBICORT [Concomitant]
     Active Substance: BUDESONIDE\FORMOTEROL FUMARATE DIHYDRATE
     Dosage: 1604.5 UNK, UNK
  10. PREDNISONE. [Concomitant]
     Active Substance: PREDNISONE
     Dosage: 10 MG, UNK
  11. FLUTICASONE. [Concomitant]
     Active Substance: FLUTICASONE
     Dosage: 50 ?G, UNK
  12. CEFUROXIME. [Concomitant]
     Active Substance: CEFUROXIME
     Dosage: 250 MG, UNK

REACTIONS (2)
  - Infective pulmonary exacerbation of cystic fibrosis [Recovering/Resolving]
  - Sinus disorder [Unknown]

NARRATIVE: CASE EVENT DATE: 20170414
